FAERS Safety Report 5695936-8 (Version None)
Quarter: 2008Q2

REPORT INFORMATION
  Report Type: 
  Country: None (occurrence: None)
  Receive Date: 20080407
  Receipt Date: 20080402
  Transmission Date: 20081010
  Serious: Yes (Hospitalization)
  Sender: FDA-Public Use
  Company Number: US-BRISTOL-MYERS SQUIBB COMPANY-14090799

PATIENT
  Age: 49 Year
  Sex: Male
  Weight: 71 kg

DRUGS (2)
  1. ERBITUX [Suspect]
     Indication: SQUAMOUS CELL CARCINOMA
     Dosage: START DATE OF THE FIRST COURSE-07JAN08
     Dates: start: 20080211, end: 20080211
  2. CISPLATIN [Suspect]
     Indication: SQUAMOUS CELL CARCINOMA
     Dosage: START DATE OF THE FIRST COURSE-07JAN08
     Dates: start: 20080129, end: 20080129

REACTIONS (3)
  - FEBRILE NEUTROPENIA [None]
  - SEPSIS [None]
  - STOMATITIS [None]
